FAERS Safety Report 14100292 (Version 1)
Quarter: 2017Q4

REPORT INFORMATION
  Report Type: Report from Study
  Country: TN (occurrence: TN)
  Receive Date: 20171017
  Receipt Date: 20171017
  Transmission Date: 20180321
  Serious: Yes (Death, Other)
  Sender: FDA-Public Use
  Company Number: TN-SA-2017SA199329

PATIENT
  Age: 41 Year
  Sex: Male

DRUGS (6)
  1. PLAVIX [Suspect]
     Active Substance: CLOPIDOGREL BISULFATE
     Indication: MYOCARDIAL INFARCTION
     Route: 048
     Dates: start: 20161123, end: 20170618
  2. ENOXAPARIN [Concomitant]
     Active Substance: ENOXAPARIN
     Route: 058
  3. CAPTOPRIL. [Concomitant]
     Active Substance: CAPTOPRIL
     Route: 048
  4. ATORVASTATIN [Concomitant]
     Active Substance: ATORVASTATIN
     Route: 048
  5. FUROSEMIDE. [Concomitant]
     Active Substance: FUROSEMIDE
     Route: 048
  6. INSULIN [Concomitant]
     Active Substance: INSULIN NOS
     Route: 058

REACTIONS (4)
  - Gastrointestinal haemorrhage [Unknown]
  - Abdominal pain [Unknown]
  - Cardiac arrest [Fatal]
  - Malaise [Unknown]

NARRATIVE: CASE EVENT DATE: 20170618
